FAERS Safety Report 5912203-5 (Version None)
Quarter: 2008Q4

REPORT INFORMATION
  Report Type: 
  Country: None (occurrence: None)
  Receive Date: 20081008
  Receipt Date: 20081001
  Transmission Date: 20090506
  Serious: Yes (Other)
  Sender: FDA-Public Use
  Company Number: MA-GILEAD-E2B_00000215

PATIENT
  Age: 75 Year
  Sex: Female

DRUGS (3)
  1. HEPSERA [Suspect]
     Route: 065
  2. LAMIVUDINE [Concomitant]
  3. ENTECAVIR [Concomitant]

REACTIONS (9)
  - FATIGUE [None]
  - FEMUR FRACTURE [None]
  - GROIN PAIN [None]
  - HYPOPHOSPHATAEMIA [None]
  - OSTEOPOROSIS [None]
  - PAIN [None]
  - PROTEINURIA [None]
  - RENAL DISORDER [None]
  - SPINAL FRACTURE [None]
